FAERS Safety Report 4975968-5 (Version None)
Quarter: 2006Q2

REPORT INFORMATION
  Report Type: 
  Country: None (occurrence: None)
  Receive Date: 20060418
  Receipt Date: 20050930
  Transmission Date: 20061013
  Serious: Yes (Death, Hospitalization, Other)
  Sender: FDA-Public Use
  Company Number: US-MERCK-0510USA01112

PATIENT
  Age: 62 Year
  Sex: Female

DRUGS (1)
  1. VIOXX [Suspect]
     Route: 048
     Dates: end: 20041018

REACTIONS (17)
  - ANAEMIA [None]
  - ANGINA PECTORIS [None]
  - ARRHYTHMIA [None]
  - BASAL GANGLION DEGENERATION [None]
  - CARDIOVASCULAR DISORDER [None]
  - CEREBROVASCULAR ACCIDENT [None]
  - DRUG TOXICITY [None]
  - GASTRITIS [None]
  - HAEMORRHAGIC STROKE [None]
  - HYPONATRAEMIA [None]
  - IRON DEFICIENCY [None]
  - MYOCARDIAL INFARCTION [None]
  - ORGAN FAILURE [None]
  - PULMONARY EMBOLISM [None]
  - THROMBOSIS [None]
  - VASCULAR DEMENTIA [None]
  - VOLVULUS [None]
